FAERS Safety Report 6872988-0 (Version None)
Quarter: 2010Q3

REPORT INFORMATION
  Report Type: 
  Country: None (occurrence: None)
  Receive Date: 20100723
  Receipt Date: 20081116
  Transmission Date: 20110219
  Serious: No
  Sender: FDA-Public Use
  Company Number: US-PFIZER INC-2008093227

PATIENT
  Sex: Female

DRUGS (17)
  1. CHANTIX [Suspect]
     Indication: SMOKING CESSATION THERAPY
     Dates: start: 20081025
  2. ASPIRIN [Concomitant]
  3. CYMBALTA [Concomitant]
  4. LASIX [Concomitant]
  5. GEODON [Concomitant]
  6. ISOSORBIDE [Concomitant]
  7. NIASPAN [Concomitant]
  8. LACTULOSE [Concomitant]
  9. TRILEPTAL [Concomitant]
  10. PLAVIX [Concomitant]
  11. PREVACID [Concomitant]
  12. SIMVASTATIN [Concomitant]
  13. MONTELUKAST SODIUM [Concomitant]
  14. ZETIA [Concomitant]
  15. INSULIN [Concomitant]
  16. ALL OTHER THERAPEUTIC PRODUCTS [Concomitant]
  17. AMBIEN [Concomitant]
     Indication: INSOMNIA

REACTIONS (3)
  - ABNORMAL DREAMS [None]
  - NIGHTMARE [None]
  - SOMNOLENCE [None]
